FAERS Safety Report 16079507 (Version 2)
Quarter: 2019Q2

REPORT INFORMATION
  Report Type: Spontaneous
  Country: CA (occurrence: CA)
  Receive Date: 20190315
  Receipt Date: 20190529
  Transmission Date: 20190711
  Serious: Yes (Death, Other)
  Sender: FDA-Public Use
  Company Number: CA-ASTRAZENECA-2019SE41769

PATIENT

DRUGS (4)
  1. SYNAGIS [Suspect]
     Active Substance: PALIVIZUMAB
     Indication: RESPIRATORY SYNCYTIAL VIRUS INFECTION
     Dosage: 1.22ML UNKNOWN
     Route: 030
     Dates: start: 20181114, end: 20181114
  2. SYNAGIS [Suspect]
     Active Substance: PALIVIZUMAB
     Indication: RESPIRATORY SYNCYTIAL VIRUS INFECTION
     Dosage: 1.31ML UNKNOWN
     Route: 030
     Dates: start: 20190206
  3. SYNAGIS [Suspect]
     Active Substance: PALIVIZUMAB
     Indication: RESPIRATORY SYNCYTIAL VIRUS INFECTION
     Dosage: 1.29ML UNKNOWN
     Route: 030
     Dates: start: 20190109, end: 20190109
  4. SYNAGIS [Suspect]
     Active Substance: PALIVIZUMAB
     Indication: RESPIRATORY SYNCYTIAL VIRUS INFECTION
     Dosage: 1.27ML UNKNOWN
     Route: 030
     Dates: start: 20181212, end: 20181212

REACTIONS (12)
  - Cardiac arrest [Unknown]
  - Immunodeficiency common variable [Unknown]
  - Extremity necrosis [Unknown]
  - Anaemia [Unknown]
  - Sepsis [Fatal]
  - Respiratory distress [Unknown]
  - Myocarditis [Fatal]
  - Diarrhoea [Unknown]
  - Stomatitis necrotising [Unknown]
  - Thrombocytopenia [Unknown]
  - Hepatic function abnormal [Unknown]
  - Hypocalcaemia [Unknown]

NARRATIVE: CASE EVENT DATE: 2019
